FAERS Safety Report 17086816 (Version 3)
Quarter: 2024Q4

REPORT INFORMATION
  Report Type: Spontaneous
  Country: CA (occurrence: CA)
  Receive Date: 20191128
  Receipt Date: 20241223
  Transmission Date: 20250114
  Serious: Yes (Death, Life-Threatening, Hospitalization)
  Sender: ROCHE
  Company Number: CA-MLMSERVICE-20191108-1503780-1

PATIENT
  Age: 76 Year
  Sex: Male

DRUGS (7)
  1. MYCOPHENOLATE MOFETIL [Suspect]
     Active Substance: MYCOPHENOLATE MOFETIL
     Indication: Prophylaxis against transplant rejection
     Route: 065
  2. TACROLIMUS [Suspect]
     Active Substance: TACROLIMUS
     Indication: Prophylaxis against transplant rejection
     Dosage: EXTENDED RELEASE
     Route: 065
  3. PREDNISONE [Suspect]
     Active Substance: PREDNISONE
     Indication: Prophylaxis against transplant rejection
     Route: 065
  4. CALCITRIOL [Concomitant]
     Active Substance: CALCITRIOL
  5. DARBEPOETIN ALFA [Concomitant]
     Active Substance: DARBEPOETIN ALFA
  6. AMLODIPINE [Concomitant]
     Active Substance: AMLODIPINE BESYLATE
  7. LABETALOL [Concomitant]
     Active Substance: LABETALOL

REACTIONS (13)
  - Mycobacterium marinum infection [Fatal]
  - Multiple organ dysfunction syndrome [Fatal]
  - Brain injury [Unknown]
  - Zoonosis [Unknown]
  - Loss of personal independence in daily activities [Unknown]
  - Cardiac arrest [Unknown]
  - Candida infection [Unknown]
  - Enterobacter infection [Unknown]
  - Staphylococcal infection [Unknown]
  - Pseudomonas infection [Unknown]
  - Asthenia [Unknown]
  - Weight decreased [Unknown]
  - Decreased appetite [Unknown]
